FAERS Safety Report 13619388 (Version 1)
Quarter: 2017Q2

REPORT INFORMATION
  Report Type: Spontaneous
  Country: US (occurrence: US)
  Receive Date: 20170606
  Receipt Date: 20170606
  Transmission Date: 20170830
  Serious: Yes (Other)
  Sender: FDA-Public Use
  Company Number: US-B.I. PHARMACEUTICALS,INC./RIDGEFIELD-2017-BI-030941

PATIENT
  Age: 88 Year
  Sex: Female

DRUGS (2)
  1. GILOTRIF [Suspect]
     Active Substance: AFATINIB
     Indication: ILL-DEFINED DISORDER
     Route: 048
     Dates: start: 201703, end: 201704
  2. GILOTRIF [Suspect]
     Active Substance: AFATINIB
     Dosage: QD;  FORM STRENGTH: 40 MG; FORMULATION: TABLET? ADMINISTRATION CORRECT? YES ?ACTION(S) TAKEN WITH PR
     Route: 048
     Dates: start: 201704, end: 20170530

REACTIONS (2)
  - Tumour marker increased [Not Recovered/Not Resolved]
  - Off label use [Unknown]

NARRATIVE: CASE EVENT DATE: 20170530
